FAERS Safety Report 8428242-9 (Version None)
Quarter: 2012Q2

REPORT INFORMATION
  Report Type: 
  Country: None (occurrence: None)
  Receive Date: 20120611
  Receipt Date: 20110919
  Transmission Date: 20120825
  Serious: No
  Sender: FDA-Public Use
  Company Number: US-ASTRAZENECA-2011SE48060

PATIENT
  Age: 78 Year
  Sex: Male

DRUGS (5)
  1. NEXIUM [Concomitant]
  2. FLOMAX [Concomitant]
  3. PULMICORT [Suspect]
     Route: 055
  4. LEXAPRIL [Concomitant]
  5. BROVANA [Concomitant]

REACTIONS (5)
  - HEADACHE [None]
  - DYSPNOEA [None]
  - MALAISE [None]
  - DIZZINESS [None]
  - COUGH [None]
